FAERS Safety Report 5910453-5 (Version None)
Quarter: 2008Q4

REPORT INFORMATION
  Report Type: 
  Country: None (occurrence: None)
  Receive Date: 20081006
  Receipt Date: 20081006
  Transmission Date: 20090506
  Serious: No
  Sender: FDA-Public Use
  Company Number: None

PATIENT
  Age: 71 Year
  Sex: Male
  Weight: 86.1834 kg

DRUGS (1)
  1. BYSTOLIC [Suspect]
     Indication: HYPERTENSION
     Dosage: 5 MG 1 PER DAY PO
     Route: 048
     Dates: start: 20080929, end: 20081005

REACTIONS (4)
  - GENERALISED OEDEMA [None]
  - MYALGIA [None]
  - OEDEMA PERIPHERAL [None]
  - WEIGHT INCREASED [None]
